FAERS Safety Report 14018670 (Version 1)
Quarter: 2017Q3

REPORT INFORMATION
  Report Type: Spontaneous
  Country: US (occurrence: None)
  Receive Date: 20170927
  Receipt Date: 20170927
  Transmission Date: 20171128
  Serious: Yes (Hospitalization)
  Sender: FDA-Public Use
  Company Number: None

PATIENT
  Age: 78 Year
  Sex: Male
  Weight: 62.6 kg

DRUGS (1)
  1. QCARE ORAL CLEANSING AND SUCTIONING SYSTEM Q4 ANTISEPTIC ORAL RINSE [Suspect]
     Active Substance: CETYLPYRIDINIUM CHLORIDE
     Indication: PRODUCT USED FOR UNKNOWN INDICATION
     Dates: start: 20170719, end: 20170817

REACTIONS (5)
  - Product use issue [None]
  - Transmission of an infectious agent via product [None]
  - Blood culture positive [None]
  - Burkholderia cepacia complex infection [None]
  - Pneumonia [None]

NARRATIVE: CASE EVENT DATE: 20170724
